FAERS Safety Report 8166194-X (Version None)
Quarter: 2012Q1

REPORT INFORMATION
  Report Type: 
  Country: None (occurrence: None)
  Receive Date: 20120223
  Receipt Date: 20120223
  Transmission Date: 20120608
  Serious: Yes (Other)
  Sender: FDA-Public Use
  Company Number: None

PATIENT
  Sex: Female
  Weight: 45.5 kg

DRUGS (11)
  1. DIAZEPAM [Concomitant]
  2. NIFEDIPINE [Concomitant]
  3. OXYCODONE HCL AND ACETAMINOPHEN [Concomitant]
  4. METOPROLOL SUCCINATE [Concomitant]
  5. ACETAMINOPHEN [Concomitant]
  6. CALCIUM [Concomitant]
  7. MULTI-VITAMIN [Concomitant]
  8. STOOL SOFTENER [Concomitant]
  9. ANACIN [Concomitant]
  10. VITAMIN D [Concomitant]
  11. FORTEO [Suspect]
     Indication: OSTEOPOROSIS
     Dosage: 20 MCG DAILY SUBCUTANEOUS
     Route: 058
     Dates: start: 20120104, end: 20120216

REACTIONS (9)
  - GENITAL RASH [None]
  - BURNING SENSATION [None]
  - RASH GENERALISED [None]
  - VASODILATATION [None]
  - WEIGHT DECREASED [None]
  - RASH ERYTHEMATOUS [None]
  - BACK PAIN [None]
  - DYSSTASIA [None]
  - SKIN EXFOLIATION [None]
